FAERS Safety Report 8364138-9 (Version None)
Quarter: 2012Q2

REPORT INFORMATION
  Report Type: 
  Country: None (occurrence: None)
  Receive Date: 20120516
  Receipt Date: 20120509
  Transmission Date: 20120825
  Serious: Yes (Death)
  Sender: FDA-Public Use
  Company Number: FR-ELI_LILLY_AND_COMPANY-FR201205002848

PATIENT
  Sex: Male

DRUGS (1)
  1. GEMZAR [Suspect]
     Indication: MALIGNANT PERITONEAL NEOPLASM
     Dosage: 1600 MG, SINGLE
     Route: 042
     Dates: start: 20120109, end: 20120109

REACTIONS (1)
  - TUMOUR LYSIS SYNDROME [None]
